FAERS Safety Report 8442075-9 (Version None)
Quarter: 2012Q2

REPORT INFORMATION
  Report Type: 
  Country: None (occurrence: None)
  Receive Date: 20120615
  Receipt Date: 20120309
  Transmission Date: 20120825
  Serious: No
  Sender: FDA-Public Use
  Company Number: US-NOVEN-12US004259

PATIENT
  Sex: Male
  Weight: 18.141 kg

DRUGS (3)
  1. DAYTRANA [Suspect]
     Indication: ATTENTION DEFICIT/HYPERACTIVITY DISORDER
     Dosage: 15 MG, QD EVERY AM
     Route: 062
     Dates: start: 20110101
  2. DAYTRANA [Suspect]
     Dosage: 1/2 15 MG PATCH
     Dates: start: 20120301
  3. FOCALIN [Suspect]
     Indication: ATTENTION DEFICIT/HYPERACTIVITY DISORDER
     Dosage: 2.5 MG, UNK
     Route: 048

REACTIONS (6)
  - WEIGHT DECREASED [None]
  - PRODUCT QUALITY ISSUE [None]
  - OFF LABEL USE [None]
  - DRUG PRESCRIBING ERROR [None]
  - INSOMNIA [None]
  - WRONG TECHNIQUE IN DRUG USAGE PROCESS [None]
